FAERS Safety Report 19009719 (Version 9)
Quarter: 2024Q3

REPORT INFORMATION
  Report Type: Report from Study
  Country: BR (occurrence: BR)
  Receive Date: 20210315
  Receipt Date: 20240704
  Transmission Date: 20241017
  Serious: Yes (Life-Threatening, Hospitalization, Other)
  Sender: TAKEDA
  Company Number: BR-TAKEDA-BR202015090

PATIENT
  Sex: Male
  Weight: 12 kg

DRUGS (5)
  1. IDURSULFASE [Suspect]
     Active Substance: IDURSULFASE
     Indication: Mucopolysaccharidosis II
     Dosage: UNK
     Route: 065
     Dates: start: 201805
  2. IDURSULFASE [Suspect]
     Active Substance: IDURSULFASE
     Dosage: 2 DOSAGE FORM
     Route: 042
  3. IDURSULFASE [Suspect]
     Active Substance: IDURSULFASE
     Dosage: UNK
     Route: 042
  4. IDURSULFASE [Suspect]
     Active Substance: IDURSULFASE
     Dosage: 2 DOSAGE FORM, 1/WEEK
     Route: 042
  5. IDURSULFASE [Suspect]
     Active Substance: IDURSULFASE
     Dosage: 3 DOSAGE FORM, 1/WEEK
     Route: 042
     Dates: start: 2020

REACTIONS (23)
  - Tongue oedema [Recovered/Resolved]
  - Pneumonia [Recovered/Resolved]
  - Congenital osteodystrophy [Unknown]
  - Lip oedema [Unknown]
  - Gait inability [Unknown]
  - Weight increased [Unknown]
  - Hypersensitivity [Unknown]
  - Illness [Unknown]
  - Stress [Unknown]
  - Influenza [Unknown]
  - Joint stiffness [Unknown]
  - Obstructive sleep apnoea syndrome [Unknown]
  - Dengue fever [Recovering/Resolving]
  - Sitting disability [Unknown]
  - Respiratory disorder [Recovering/Resolving]
  - Fatigue [Unknown]
  - Feeding tube user [Unknown]
  - Bedridden [Unknown]
  - Loss of personal independence in daily activities [Unknown]
  - Pyrexia [Unknown]
  - Product availability issue [Unknown]
  - Inappropriate schedule of product administration [Not Recovered/Not Resolved]
  - Product dose omission issue [Unknown]

NARRATIVE: CASE EVENT DATE: 20190101
